FAERS Safety Report 19679864 (Version 1)
Quarter: 2021Q3

REPORT INFORMATION
  Report Type: Spontaneous
  Country: CZ (occurrence: CZ)
  Receive Date: 20210810
  Receipt Date: 20210810
  Transmission Date: 20211014
  Serious: Yes (Disabling)
  Sender: FDA-Public Use
  Company Number: CZ-JNJFOC-20210810286

PATIENT
  Age: 30 Year
  Sex: Female
  Weight: 48 kg

DRUGS (3)
  1. STELARA [Suspect]
     Active Substance: USTEKINUMAB
  2. VIGANTOL [Concomitant]
     Dates: start: 201902
  3. STELARA [Suspect]
     Active Substance: USTEKINUMAB
     Indication: CROHN^S DISEASE
     Route: 058
     Dates: start: 20190419, end: 20201130

REACTIONS (1)
  - Hyperhidrosis [Recovered/Resolved]

NARRATIVE: CASE EVENT DATE: 2020
